FAERS Safety Report 7257943-3 (Version None)
Quarter: 2011Q1

REPORT INFORMATION
  Report Type: 
  Country: None (occurrence: None)
  Receive Date: 20110129
  Receipt Date: 20100608
  Transmission Date: 20110831
  Serious: No
  Sender: FDA-Public Use
  Company Number: US-ABBOTT-10P-163-0650515-00

PATIENT
  Sex: Male
  Weight: 90.8 kg

DRUGS (4)
  1. HUMIRA [Suspect]
     Indication: CROHN'S DISEASE
     Dates: start: 20100608, end: 20100608
  2. INSULIN [Concomitant]
     Indication: DIABETES MELLITUS
     Dosage: SLIDING SCALE
  3. MESALAMINE [Concomitant]
     Indication: PRODUCT USED FOR UNKNOWN INDICATION
  4. ENTICORT [Concomitant]
     Indication: CROHN'S DISEASE

REACTIONS (1)
  - DIZZINESS [None]
